FAERS Safety Report 7047211-7 (Version None)
Quarter: 2010Q4

REPORT INFORMATION
  Report Type: 
  Country: None (occurrence: None)
  Receive Date: 20101015
  Receipt Date: 20101004
  Transmission Date: 20110411
  Serious: Yes (Other)
  Sender: FDA-Public Use
  Company Number: FI-WATSON-2010-13463

PATIENT
  Age: 58 Year
  Sex: Female

DRUGS (3)
  1. ACETAZOLAMIDE [Suspect]
     Indication: GLAUCOMA
     Dosage: 125 MG, TID
     Dates: start: 20060801
  2. CYCLOPHOSPHAMIDE [Suspect]
     Indication: IMMUNOSUPPRESSION
     Dosage: 150 MG, QOD
     Dates: start: 20030101
  3. CYCLOPHOSPHAMIDE [Suspect]
     Dosage: 175 MG, QOD

REACTIONS (2)
  - DRUG INTERACTION [None]
  - DRUG TOXICITY [None]
